FAERS Safety Report 6006092-0 (Version None)
Quarter: 2008Q4

REPORT INFORMATION
  Report Type: 
  Country: None (occurrence: None)
  Receive Date: 20081217
  Receipt Date: 20081212
  Transmission Date: 20090506
  Serious: Yes (Hospitalization, Other)
  Sender: FDA-Public Use
  Company Number: CA-WYE-G02536108

PATIENT
  Sex: Female

DRUGS (4)
  1. EFFEXOR XR [Suspect]
     Indication: DEPRESSION
     Route: 048
     Dates: start: 20010307, end: 20080801
  2. PROPRANOLOL [Concomitant]
  3. CLONAZEPAM [Concomitant]
  4. LITHIUM CARBONATE [Suspect]
     Indication: DEPRESSION
     Dosage: 750 MG EVERY
     Route: 048
     Dates: start: 20060601, end: 20081101

REACTIONS (2)
  - ACUTE PSYCHOSIS [None]
  - TARDIVE DYSKINESIA [None]
